FAERS Safety Report 11200569 (Version 2)
Quarter: 2015Q2

REPORT INFORMATION
  Report Type: Report from Study
  Country: NZ (occurrence: NZ)
  Receive Date: 20150618
  Receipt Date: 20150629
  Transmission Date: 20150821
  Serious: Yes (Hospitalization, Disabling, Other)
  Sender: FDA-Public Use
  Company Number: NZ-ABBVIE-15K-118-1407907-00

PATIENT
  Age: 35 Year
  Sex: Female
  Weight: 54 kg

DRUGS (5)
  1. AZATHIOPRINE. [Concomitant]
     Active Substance: AZATHIOPRINE
     Dosage: INTERMITTENT LOW DOSE
     Dates: start: 200511, end: 200709
  2. HUMIRA [Suspect]
     Active Substance: ADALIMUMAB
     Indication: CROHN^S DISEASE
     Route: 058
     Dates: start: 201003
  3. AZATHIOPRINE. [Concomitant]
     Active Substance: AZATHIOPRINE
     Dosage: INTERMITTENT LOW DOSE
     Dates: start: 201502
  4. LOPERAMIDE [Concomitant]
     Active Substance: LOPERAMIDE
     Indication: DIARRHOEA
     Route: 048
     Dates: start: 200611
  5. AZATHIOPRINE. [Concomitant]
     Active Substance: AZATHIOPRINE
     Indication: PRODUCT USED FOR UNKNOWN INDICATION
     Dates: start: 200312, end: 200501

REACTIONS (13)
  - Ileal stenosis [Unknown]
  - Ileal stenosis [Recovered/Resolved]
  - Gastrointestinal stoma complication [Unknown]
  - Abdominal adhesions [Unknown]
  - Crohn^s disease [Not Recovered/Not Resolved]
  - Functional gastrointestinal disorder [Unknown]
  - Haemoglobin decreased [Unknown]
  - Blood albumin decreased [Unknown]
  - Gastrointestinal wall thickening [Unknown]
  - Neutralising antibodies positive [Unknown]
  - Drug level decreased [Unknown]
  - Short-bowel syndrome [Unknown]
  - Intestinal dilatation [Unknown]

NARRATIVE: CASE EVENT DATE: 201408
